FAERS Safety Report 5627434-1 (Version None)
Quarter: 2008Q1

REPORT INFORMATION
  Report Type: 
  Country: None (occurrence: None)
  Receive Date: 20080215
  Receipt Date: 20080201
  Transmission Date: 20080703
  Serious: Yes (Other)
  Sender: FDA-Public Use
  Company Number: US-AMGEN-QUU263570

PATIENT
  Age: 29 Year
  Sex: Male

DRUGS (1)
  1. ENBREL [Suspect]
     Indication: PSORIASIS
     Route: 058
     Dates: start: 20070101, end: 20080101

REACTIONS (5)
  - ELECTROCARDIOGRAM ABNORMAL [None]
  - HAEMATOLOGY TEST ABNORMAL [None]
  - HYPERTENSION [None]
  - INSOMNIA [None]
  - THALASSAEMIA BETA [None]
